FAERS Safety Report 22610295 (Version 2)
Quarter: 2023Q2

REPORT INFORMATION
  Report Type: Spontaneous
  Country: JP (occurrence: JP)
  Receive Date: 20230616
  Receipt Date: 20230619
  Transmission Date: 20230722
  Serious: Yes (Life-Threatening, Other)
  Sender: FDA-Public Use
  Company Number: JP-MSD-M2023-17687

PATIENT
  Age: 7 Decade
  Sex: Female
  Weight: 52.5 kg

DRUGS (3)
  1. BRIDION [Suspect]
     Active Substance: SUGAMMADEX
     Indication: Neuromuscular blockade reversal
     Dosage: 200 MILLIGRAM
     Route: 042
     Dates: start: 2023
  2. ROCURONIUM BROMIDE [Suspect]
     Active Substance: ROCURONIUM BROMIDE
     Dosage: 50 MILLIGRAM, ONCE
     Route: 042
     Dates: start: 2023, end: 2023
  3. SEVOFLURANE [Concomitant]
     Active Substance: SEVOFLURANE
     Indication: Anaesthesia procedure
     Dosage: UNK
     Route: 065
     Dates: start: 2023

REACTIONS (2)
  - Recurrence of neuromuscular blockade [Not Recovered/Not Resolved]
  - Cardiac arrest [Unknown]

NARRATIVE: CASE EVENT DATE: 20230101
